FAERS Safety Report 17532462 (Version 1)
Quarter: 2020Q1

REPORT INFORMATION
  Report Type: Report from Study
  Country: GB (occurrence: GB)
  Receive Date: 20200312
  Receipt Date: 20200312
  Transmission Date: 20200409
  Serious: Yes (Other)
  Sender: FDA-Public Use
  Company Number: GB-JNJFOC-20200243473

PATIENT
  Age: 27 Year
  Sex: Female
  Weight: 92 kg

DRUGS (2)
  1. STELARA [Suspect]
     Active Substance: USTEKINUMAB
     Indication: PSORIASIS
     Route: 058
     Dates: start: 20150722, end: 20190517
  2. DROSPIRENONE W/ETHINYLESTRADIOL [Concomitant]
     Active Substance: DROSPIRENONE\ETHINYL ESTRADIOL
     Indication: PRODUCT USED FOR UNKNOWN INDICATION
     Route: 065
     Dates: start: 20170102

REACTIONS (3)
  - Exposure during pregnancy [Recovered/Resolved]
  - Haematoma [Unknown]
  - Postoperative wound infection [Unknown]

NARRATIVE: CASE EVENT DATE: 20190606
